FAERS Safety Report 12361693 (Version 3)
Quarter: 2016Q4

REPORT INFORMATION
  Report Type: Spontaneous
  Country: US (occurrence: US)
  Receive Date: 20160512
  Receipt Date: 20161108
  Transmission Date: 20170207
  Serious: No
  Sender: FDA-Public Use
  Company Number: US-SA-2016SA075244

PATIENT
  Age: 73 Year
  Sex: Female
  Weight: 81.64 kg

DRUGS (7)
  1. ALIROCUMAB PREFILLED PEN [Concomitant]
     Active Substance: ALIROCUMAB
     Indication: HYPERLIPIDAEMIA
     Dates: start: 20160330, end: 20160401
  2. VITAMIN D [Concomitant]
     Active Substance: CHOLECALCIFEROL
     Dosage: 1000
     Dates: start: 2009
  3. OMEPRAZOLE. [Concomitant]
     Active Substance: OMEPRAZOLE
     Indication: GASTROOESOPHAGEAL REFLUX DISEASE
     Dates: start: 2002
  4. PRALUENT [Suspect]
     Active Substance: ALIROCUMAB
     Indication: HYPERLIPIDAEMIA
     Route: 058
     Dates: start: 20160330, end: 20160801
  5. PREDNISONE. [Concomitant]
     Active Substance: PREDNISONE
     Indication: POLYMYALGIA RHEUMATICA
     Dates: start: 2014
  6. CITALOPRAM [Concomitant]
     Active Substance: CITALOPRAM HYDROBROMIDE
     Indication: DEPRESSION
     Dates: start: 2004
  7. ASPIRIN. [Concomitant]
     Active Substance: ASPIRIN
     Indication: CAROTID ARTERY DISEASE
     Dates: start: 2008

REACTIONS (9)
  - Condition aggravated [Unknown]
  - Insomnia [Recovered/Resolved]
  - Pain in extremity [Recovered/Resolved]
  - Fatigue [Recovered/Resolved]
  - Pruritus [Recovered/Resolved]
  - Influenza like illness [Recovering/Resolving]
  - Myalgia [Unknown]
  - Abdominal pain [Recovering/Resolving]
  - Lymphadenopathy [Recovering/Resolving]

NARRATIVE: CASE EVENT DATE: 20160401
